FAERS Safety Report 5336352-8 (Version None)
Quarter: 2007Q2

REPORT INFORMATION
  Report Type: 
  Country: None (occurrence: None)
  Receive Date: 20070523
  Receipt Date: 20070508
  Transmission Date: 20071010
  Serious: Yes (Hospitalization)
  Sender: FDA-Public Use
  Company Number: 013345

PATIENT
  Age: 18 Year
  Sex: Female

DRUGS (3)
  1. CLARAVIS [Suspect]
     Indication: ACNE
     Dosage: 40 MG, BID, ORAL
     Route: 048
     Dates: start: 20070303, end: 20070508
  2. LEVOXYL [Concomitant]
  3. GEODON [Concomitant]

REACTIONS (2)
  - DEPRESSION [None]
  - NEGATIVE THOUGHTS [None]
